FAERS Safety Report 9486924 (Version 4)
Quarter: 2014Q1

REPORT INFORMATION
  Report Type: Spontaneous
  Country: US (occurrence: US)
  Receive Date: 20130829
  Receipt Date: 20140109
  Transmission Date: 20141002
  Serious: Yes (Hospitalization)
  Sender: FDA-Public Use
  Company Number: US-B.I. PHARMACEUTICALS,INC./RIDGEFIELD-2013-BI-22427BP

PATIENT
  Age: 51 Year
  Sex: Female
  Weight: 94.8 kg

DRUGS (13)
  1. PRADAXA [Suspect]
     Indication: ATRIAL FIBRILLATION
     Dosage: 300 MG
     Route: 048
     Dates: start: 20111031, end: 20130324
  2. OXYBUTIN [Concomitant]
     Indication: HYPERTONIC BLADDER
     Dosage: 10 MG
     Route: 048
     Dates: start: 2004
  3. PROTONIX [Concomitant]
     Indication: GASTROOESOPHAGEAL REFLUX DISEASE
     Route: 048
     Dates: start: 2010
  4. POTASSIUM [Concomitant]
     Indication: SUPPLEMENTATION THERAPY
     Dosage: 80 MEQ
     Route: 048
     Dates: start: 2010
  5. METOPROLOL [Concomitant]
     Indication: ARRHYTHMIA
     Dosage: 100 MG
     Route: 048
     Dates: start: 2010
  6. HYOSCYAMINE [Concomitant]
     Indication: ABDOMINAL PAIN
     Route: 048
     Dates: start: 2009
  7. GABAPENTIN [Concomitant]
     Indication: RESTLESS LEGS SYNDROME
     Dosage: 600 MG
     Route: 048
     Dates: start: 2010
  8. LASIX [Concomitant]
     Indication: FLUID RETENTION
     Dosage: 80 MG
     Route: 048
     Dates: start: 2010
  9. ENALAPRIL [Concomitant]
     Indication: HYPERTENSION
     Dosage: 40 MG
     Route: 048
     Dates: start: 2010
  10. HYDROCODONE [Concomitant]
     Indication: PAIN
     Dosage: 30 MG
     Route: 048
     Dates: start: 2012
  11. ASPIRIN [Concomitant]
     Indication: CEREBROVASCULAR ACCIDENT PROPHYLAXIS
     Dosage: 81 MG
     Route: 048
     Dates: start: 2013
  12. FLEXERIL [Concomitant]
     Indication: MUSCLE SPASMS
     Dosage: 15 MG
     Route: 048
     Dates: start: 2010
  13. TIZANIDINE [Concomitant]
     Indication: MUSCLE SPASMS
     Route: 048
     Dates: start: 2009

REACTIONS (3)
  - Lower gastrointestinal haemorrhage [Recovered/Resolved]
  - Arteriovenous malformation [Unknown]
  - Large intestine polyp [Unknown]
